FAERS Safety Report 25984538 (Version 1)
Quarter: 2025Q4

REPORT INFORMATION
  Report Type: Spontaneous
  Country: US (occurrence: US)
  Receive Date: 20251031
  Receipt Date: 20251031
  Transmission Date: 20260118
  Serious: No
  Sender: AMGEN
  Company Number: US-AMGEN-USASP2025212479

PATIENT
  Age: 72 Year
  Sex: Female

DRUGS (17)
  1. OTEZLA [Suspect]
     Active Substance: APREMILAST
     Indication: Psoriatic arthropathy
     Dosage: 30 MILLIGRAM (TK PO UTD PER PROTOCOL )
     Route: 048
     Dates: start: 20251003
  2. PREDNISONE [Suspect]
     Active Substance: PREDNISONE
     Indication: Product used for unknown indication
     Dosage: UNK
     Route: 065
  3. BUPROPION [Concomitant]
     Active Substance: BUPROPION
  4. CALCIUM [Concomitant]
     Active Substance: CALCIUM
  5. MAGNESIUM [Concomitant]
     Active Substance: MAGNESIUM
  6. MUCINEX [Concomitant]
     Active Substance: GUAIFENESIN
  7. ATORVASTATIN [Concomitant]
     Active Substance: ATORVASTATIN
  8. LEFLUNOMIDE [Concomitant]
     Active Substance: LEFLUNOMIDE
  9. OMEPRAZOLE [Concomitant]
     Active Substance: OMEPRAZOLE
  10. FENOFIBRATE [Concomitant]
     Active Substance: FENOFIBRATE
  11. MONTELUKAST [Concomitant]
     Active Substance: MONTELUKAST
  12. LORAZEPAM [Concomitant]
     Active Substance: LORAZEPAM
  13. ZOLPIDEM [Concomitant]
     Active Substance: ZOLPIDEM TARTRATE
  14. TRAZODONE [Concomitant]
     Active Substance: TRAZODONE HYDROCHLORIDE
  15. PREGABALIN [Concomitant]
     Active Substance: PREGABALIN
  16. FAMOTIDINE [Concomitant]
     Active Substance: FAMOTIDINE
  17. MELOXICAM [Concomitant]
     Active Substance: MELOXICAM

REACTIONS (2)
  - Diarrhoea [Not Recovered/Not Resolved]
  - Ill-defined disorder [Recovering/Resolving]

NARRATIVE: CASE EVENT DATE: 20251001
